FAERS Safety Report 10250250 (Version 2)
Quarter: 2014Q2

REPORT INFORMATION
  Report Type: Report from Study
  Country: US (occurrence: US)
  Receive Date: 20140620
  Receipt Date: 20140620
  Transmission Date: 20141212
  Serious: Yes (Death, Other)
  Sender: FDA-Public Use
  Company Number: US-JNJFOC-20140410670

PATIENT
  Sex: Male
  Weight: 66 kg

DRUGS (8)
  1. ZYTIGA [Suspect]
     Indication: PROSTATE CANCER
     Route: 048
     Dates: start: 20130530, end: 20131114
  2. PREDNISONE [Suspect]
     Indication: PROSTATE CANCER
     Route: 065
  3. FLUOROURACIL [Concomitant]
     Route: 065
  4. LEUCOVORIN CALCIUM [Concomitant]
     Route: 065
  5. ATENOLOL [Concomitant]
     Route: 065
  6. COMBIGAN [Concomitant]
     Route: 065
  7. LOTENSIN [Concomitant]
     Route: 065
  8. LUPRON [Concomitant]
     Route: 065

REACTIONS (4)
  - Death [Fatal]
  - Jaundice [Recovered/Resolved]
  - Headache [Recovered/Resolved]
  - Prostatic specific antigen increased [Unknown]
